FAERS Safety Report 8487196-X (Version None)
Quarter: 2012Q3

REPORT INFORMATION
  Report Type: 
  Country: None (occurrence: None)
  Receive Date: 20120705
  Receipt Date: 20120621
  Transmission Date: 20120928
  Serious: Yes (Other)
  Sender: FDA-Public Use
  Company Number: PT-ROCHE-1081069

PATIENT
  Sex: Female
  Weight: 61 kg

DRUGS (10)
  1. VITAMIN TAB [Concomitant]
     Dates: start: 20070319
  2. AVASTIN [Suspect]
     Indication: COLON CANCER
     Dates: end: 20080220
  3. FLUOROURACIL [Suspect]
     Dosage: 8 CYCLES
     Dates: start: 20070417, end: 20070801
  4. AVASTIN [Suspect]
     Dosage: 7 CYCLES, 7 CYCLES WITH MONOCLONAL ANTIBODY BEVACIZUMAB.
     Dates: start: 20070417, end: 20070718
  5. FLUOROURACIL [Suspect]
     Indication: COLON CANCER
     Dates: start: 20071205, end: 20080220
  6. ALPRAZOLAM [Concomitant]
  7. LEUCOVORIN CALCIUM [Suspect]
     Dosage: 8 CYCLES
     Dates: start: 20070417, end: 20070801
  8. IRINOTECAN HCL [Suspect]
     Indication: COLON CANCER
     Dates: start: 20071205, end: 20080220
  9. IRINOTECAN HCL [Suspect]
     Dates: start: 20070417, end: 20070718
  10. LEUCOVORIN CALCIUM [Suspect]
     Indication: COLON CANCER
     Dates: start: 20071205, end: 20080220

REACTIONS (2)
  - METASTASES TO LIVER [None]
  - NEOPLASM MALIGNANT [None]
